FAERS Safety Report 12437553 (Version 1)
Quarter: 2016Q2

REPORT INFORMATION
  Report Type: Spontaneous
  Country: US (occurrence: None)
  Receive Date: 20160603
  Receipt Date: 20160603
  Transmission Date: 20160815
  Serious: No
  Sender: FDA-Public Use
  Company Number: None

PATIENT
  Age: 72 Year
  Sex: Male

DRUGS (1)
  1. ZYTIGA [Suspect]
     Active Substance: ABIRATERONE ACETATE
     Dosage: 40MG 4CQD ORAL
     Route: 048
     Dates: start: 20160501

REACTIONS (2)
  - Epistaxis [None]
  - Thrombocytopenia [None]

NARRATIVE: CASE EVENT DATE: 20150501
